FAERS Safety Report 23578266 (Version 1)
Quarter: 2024Q1

REPORT INFORMATION
  Report Type: Spontaneous
  Country: SG (occurrence: None)
  Receive Date: 20240229
  Receipt Date: 20240229
  Transmission Date: 20240410
  Serious: Yes (Death)
  Sender: FDA-Public Use
  Company Number: SG-ROCHE-3495956

PATIENT
  Age: 60 Year
  Sex: Female
  Weight: 64 kg

DRUGS (1)
  1. KADCYLA [Suspect]
     Active Substance: ADO-TRASTUZUMAB EMTANSINE
     Indication: Breast cancer
     Route: 065
     Dates: end: 202310

REACTIONS (6)
  - Death [Fatal]
  - Ill-defined disorder [Unknown]
  - Alopecia [Not Recovered/Not Resolved]
  - Urine odour abnormal [Not Recovered/Not Resolved]
  - Asthenia [Not Recovered/Not Resolved]
  - Defaecation disorder [Not Recovered/Not Resolved]

NARRATIVE: CASE EVENT DATE: 20240218
